FAERS Safety Report 9670174 (Version 1)
Quarter: 2013Q4

REPORT INFORMATION
  Report Type: Spontaneous
  Country: GB (occurrence: GB)
  Receive Date: 20131105
  Receipt Date: 20131105
  Transmission Date: 20140711
  Serious: Yes (Disabling)
  Sender: FDA-Public Use
  Company Number: GB-TEVA-441773ISR

PATIENT
  Age: 85 Year
  Sex: Male
  Weight: 73 kg

DRUGS (10)
  1. METFORMIN [Suspect]
     Indication: PRODUCT USED FOR UNKNOWN INDICATION
     Dosage: 500 (UNITS NOT SPECIFIED)- 2 IN THE MORNING, 1 IN MID DAY AND 2 AT NIGHT
     Dates: start: 2002
  2. CANDESARTAN [Concomitant]
     Indication: HYPERTENSION
     Dates: start: 20020402
  3. CANDESARTAN [Concomitant]
     Dates: start: 20020402
  4. BENDROFLUMETHIAZIDE [Concomitant]
     Indication: HYPERTENSION
     Dosage: 2.5 MILLIGRAM DAILY;
     Dates: start: 20040721
  5. WARFARIN [Concomitant]
     Indication: ATRIAL FIBRILLATION
     Dates: start: 20050524
  6. WARFARIN [Concomitant]
     Dates: start: 20050524
  7. WARFARIN [Concomitant]
     Dates: start: 20050524
  8. VITAMIN B12 [Concomitant]
     Indication: VITAMIN B12 DEFICIENCY
     Dates: start: 20050506
  9. MOVICOL [Concomitant]
     Indication: CONSTIPATION
     Dosage: 27.6 GRAM DAILY;
     Dates: start: 20130402
  10. BISOPROLOL [Concomitant]
     Indication: BLOOD PRESSURE INCREASED
     Dosage: 1.25 MILLIGRAM DAILY;
     Dates: start: 20130508

REACTIONS (2)
  - Gait disturbance [Not Recovered/Not Resolved]
  - Blood creatinine increased [Unknown]
